FAERS Safety Report 9430494 (Version 1)
Quarter: 2013Q3

REPORT INFORMATION
  Report Type: Spontaneous
  Country: AU (occurrence: AU)
  Receive Date: 20130730
  Receipt Date: 20130730
  Transmission Date: 20140515
  Serious: Yes (Other)
  Sender: FDA-Public Use
  Company Number: AU-GLAXOSMITHKLINE-B0911683A

PATIENT
  Age: 58 Year
  Sex: Female

DRUGS (1)
  1. SERETIDE 50MCG/500MCG [Suspect]
     Indication: ASTHMA
     Route: 065

REACTIONS (2)
  - Oesophageal candidiasis [Unknown]
  - Condition aggravated [Unknown]
